FAERS Safety Report 19232728 (Version 1)
Quarter: 2021Q2

REPORT INFORMATION
  Report Type: Spontaneous
  Country: US (occurrence: US)
  Receive Date: 20210507
  Receipt Date: 20210507
  Transmission Date: 20210717
  Serious: No
  Sender: FDA-Public Use
  Company Number: US-CELGENEUS-USA-20210407436

PATIENT
  Sex: Male

DRUGS (8)
  1. REVLIMID [Suspect]
     Active Substance: LENALIDOMIDE
     Indication: PLASMA CELL MYELOMA
     Dosage: 10 MILLIGRAM
     Route: 048
     Dates: start: 201703
  2. REVLIMID [Suspect]
     Active Substance: LENALIDOMIDE
     Dosage: 5?10 MG
     Route: 048
     Dates: start: 201709
  3. NINLARO [Suspect]
     Active Substance: IXAZOMIB CITRATE
     Indication: PRODUCT USED FOR UNKNOWN INDICATION
     Route: 065
  4. REVLIMID [Suspect]
     Active Substance: LENALIDOMIDE
     Dosage: 5 MILLIGRAM
     Route: 048
     Dates: start: 202103
  5. REVLIMID [Suspect]
     Active Substance: LENALIDOMIDE
     Dosage: 25 MILLIGRAM
     Route: 048
     Dates: start: 20180320
  6. REVLIMID [Suspect]
     Active Substance: LENALIDOMIDE
     Dosage: 10?25 MG
     Route: 048
     Dates: start: 201607
  7. REVLIMID [Suspect]
     Active Substance: LENALIDOMIDE
     Dosage: 25?15 MG
     Route: 048
     Dates: start: 201302
  8. REVLIMID [Suspect]
     Active Substance: LENALIDOMIDE
     Dosage: 25?15 MG
     Route: 048
     Dates: start: 201805

REACTIONS (1)
  - Drug ineffective [Unknown]
